FAERS Safety Report 18204908 (Version 1)
Quarter: 2020Q3

REPORT INFORMATION
  Report Type: Spontaneous
  Country: JP (occurrence: JP)
  Receive Date: 20200828
  Receipt Date: 20200828
  Transmission Date: 20201103
  Serious: Yes (Hospitalization, Other)
  Sender: FDA-Public Use
  Company Number: JP-TEVA-2020-JP-1822074

PATIENT
  Age: 68 Year
  Sex: Female

DRUGS (4)
  1. DOPAMINE PREPARATION [Concomitant]
  2. NOURIAST [Concomitant]
     Active Substance: ISTRADEFYLLINE
  3. AZILECT [Suspect]
     Active Substance: RASAGILINE MESYLATE
     Indication: PARKINSON^S DISEASE
     Dosage: 1 MILLIGRAM DAILY;
     Route: 048
     Dates: end: 20200810
  4. BI SIFROL [Concomitant]
     Active Substance: PRAMIPEXOLE

REACTIONS (2)
  - Physical deconditioning [Unknown]
  - Pyrexia [Not Recovered/Not Resolved]

NARRATIVE: CASE EVENT DATE: 20200810
